FAERS Safety Report 4510512-8 (Version None)
Quarter: 2004Q4

REPORT INFORMATION
  Report Type: 
  Country: None (occurrence: None)
  Receive Date: 20041122
  Receipt Date: 20041112
  Transmission Date: 20050328
  Serious: Yes (Death)
  Sender: FDA-Public Use
  Company Number: STA-AE-04-MTX-567

PATIENT
  Age: 79 Year
  Sex: Female

DRUGS (4)
  1. METHOTREXATE [Suspect]
     Indication: RHEUMATOID ARTHRITIS
     Dosage: 2.5 MG 1 X PER 1 WK, ORAL
     Route: 048
     Dates: start: 19871023
  2. REMICADE [Concomitant]
  3. PREDNISONE [Concomitant]
  4. ARAVA [Concomitant]

REACTIONS (1)
  - CARDIO-RESPIRATORY ARREST [None]
